FAERS Safety Report 4924558-9 (Version None)
Quarter: 2006Q1

REPORT INFORMATION
  Report Type: 
  Country: None (occurrence: None)
  Receive Date: 20060222
  Receipt Date: 20060209
  Transmission Date: 20060701
  Serious: Yes (Other)
  Sender: FDA-Public Use
  Company Number: 2006020889

PATIENT
  Age: 56 Year
  Sex: Male

DRUGS (1)
  1. VIAGRA [Suspect]
     Indication: ERECTILE DYSFUNCTION
     Dosage: (50 MG), ORAL
     Route: 048
     Dates: start: 20060103, end: 20060103

REACTIONS (2)
  - HEADACHE [None]
  - MUSCLE SPASMS [None]
